FAERS Safety Report 5191854-2 (Version None)
Quarter: 2006Q4

REPORT INFORMATION
  Report Type: 
  Country: None (occurrence: None)
  Receive Date: 20061218
  Receipt Date: 20061211
  Transmission Date: 20070319
  Serious: Yes (Hospitalization, Other)
  Sender: FDA-Public Use
  Company Number: CHWYE802911DEC06

PATIENT
  Age: 67 Year
  Sex: Female

DRUGS (5)
  1. EFFEXOR [Suspect]
     Dosage: 150 MG 2X PER 1 DAY ORAL
     Route: 048
     Dates: end: 20061119
  2. TRAMADOL HCL [Suspect]
     Dosage: 50MG 4X PER 1 DAY ORAL
     Route: 048
     Dates: end: 20061119
  3. CO-DAFALGAN (CODEINE PHOSPHATE HEMIHYDRATE/PARACETAMOL) [Concomitant]
  4. OMEPRAZOLE [Concomitant]
  5. HALDOL SOLUTAB [Concomitant]

REACTIONS (2)
  - DRUG INTERACTION [None]
  - SEROTONIN SYNDROME [None]
